FAERS Safety Report 16176566 (Version 1)
Quarter: 2019Q2

REPORT INFORMATION
  Report Type: Spontaneous
  Country: ES (occurrence: ES)
  Receive Date: 20190409
  Receipt Date: 20190409
  Transmission Date: 20190711
  Serious: Yes (Other)
  Sender: FDA-Public Use
  Company Number: ES-B.I. PHARMACEUTICALS,INC./RIDGEFIELD-2019-12-001130

PATIENT
  Age: 60 Year
  Sex: Female
  Weight: 74.7 kg

DRUGS (11)
  1. JARDIANCE [Suspect]
     Active Substance: EMPAGLIFLOZIN
     Indication: TYPE 2 DIABETES MELLITUS
     Dosage: 1 COMPRIMIDO CADA DIA 30 COMPRIMIDOS
     Route: 048
     Dates: start: 20170913
  2. PROPRANOLOL ACCORD [Concomitant]
     Indication: PRODUCT USED FOR UNKNOWN INDICATION
     Dosage: 1 COMPRIMIDO CADA DIA 50 COMPRIMIDOS
     Route: 048
     Dates: start: 20161122
  3. BIPRETERAX [Concomitant]
     Active Substance: INDAPAMIDE\PERINDOPRIL
     Indication: ESSENTIAL HYPERTENSION
     Dosage: 1 COMPRIMIDO CADA DIA 30 COMPRIMIDOS
     Route: 048
     Dates: start: 20170913
  4. SALAZOPYRINA [Concomitant]
     Active Substance: SULFASALAZINE
     Indication: RHEUMATOID ARTHRITIS
     Dosage: 1 COMPRIMIDO CADA 8 HORAS 50 COMPRIMIDOS
     Route: 048
     Dates: start: 20160929
  5. FENOFIBRATO RANBAXY [Concomitant]
     Indication: PRODUCT USED FOR UNKNOWN INDICATION
     Dosage: 1 COMPRIMIDO CADA DIA 30 COMPRIMID REC PEL EFG
     Route: 048
     Dates: start: 20150806
  6. METOJECT [Concomitant]
     Active Substance: METHOTREXATE SODIUM
     Indication: TYPE 2 DIABETES MELLITUS
     Dosage: 1 JERINGA PRECARGADA CADA 7 DIAS 15MG/0,30ML SOLUCION INYECTABLE EN 1 JERINGA PRECARGADA
     Route: 065
     Dates: start: 20150216
  7. VELMETIA [Concomitant]
     Active Substance: METFORMIN\SITAGLIPTIN
     Indication: TYPE 2 DIABETES MELLITUS
     Dosage: 1 COMPRIMIDO CADA 12 HORAS 50/1000 MG 56 COMRPIMIDOS RECUBIERTOS
     Route: 048
     Dates: start: 20140227
  8. ACIDO ACETILSALICILICO APOTEX [Concomitant]
     Indication: PRODUCT USED FOR UNKNOWN INDICATION
     Dosage: 1 COMPRIMIDO CADA DIA 30 COMPRIMIDOS
     Route: 048
     Dates: start: 20131217
  9. OMEPRAZOL NORMON [Concomitant]
     Indication: DYSPEPSIA
     Dosage: 1 CAPSULA CADA DIA 28 CAPSULAS
     Route: 048
     Dates: start: 20160828
  10. EUTIROX [Concomitant]
     Active Substance: LEVOTHYROXINE SODIUM
     Indication: HYPOTHYROIDISM
     Dosage: 1 COMPRIMIDO CADA DIA 100 COMPRIMIDOS
     Route: 048
     Dates: start: 20181015
  11. ACFOL [Concomitant]
     Active Substance: FOLIC ACID
     Indication: RHEUMATOID ARTHRITIS
     Dosage: 1 COMPRIMIDO CADA 7 DIAS 28 COMPRIMIDOS
     Route: 048
     Dates: start: 20150709

REACTIONS (3)
  - Hand fracture [Recovering/Resolving]
  - Fall [Recovering/Resolving]
  - Candida infection [Recovering/Resolving]

NARRATIVE: CASE EVENT DATE: 20190213
